FAERS Safety Report 14768817 (Version 1)
Quarter: 2018Q2

REPORT INFORMATION
  Report Type: Spontaneous
  Country: US (occurrence: US)
  Receive Date: 20180417
  Receipt Date: 20180417
  Transmission Date: 20180711
  Serious: No
  Sender: FDA-Public Use
  Company Number: US-DSJP-DSU-2018-102210

PATIENT

DRUGS (1)
  1. MORPHABOND ER [Suspect]
     Active Substance: MORPHINE SULFATE
     Indication: PAIN
     Dosage: UNK (2-30MG)
     Route: 065

REACTIONS (3)
  - Medication residue present [Unknown]
  - Constipation [Unknown]
  - Abdominal pain upper [Unknown]
